FAERS Safety Report 20963935 (Version 3)
Quarter: 2022Q3

REPORT INFORMATION
  Report Type: Report from Study
  Country: FR (occurrence: FR)
  Receive Date: 20220615
  Receipt Date: 20220715
  Transmission Date: 20221027
  Serious: Yes (Hospitalization, Other)
  Sender: FDA-Public Use
  Company Number: FR-TAKEDA-2022TUS038485

PATIENT
  Age: 8 Year
  Sex: Female

DRUGS (21)
  1. TEDUGLUTIDE [Suspect]
     Active Substance: TEDUGLUTIDE
     Indication: Short-bowel syndrome
     Dosage: 1 MILLIGRAM, QD
     Route: 042
     Dates: start: 20190910
  2. TEDUGLUTIDE [Suspect]
     Active Substance: TEDUGLUTIDE
     Indication: Short-bowel syndrome
     Dosage: 1 MILLIGRAM, QD
     Route: 042
     Dates: start: 20190910
  3. TEDUGLUTIDE [Suspect]
     Active Substance: TEDUGLUTIDE
     Indication: Short-bowel syndrome
     Dosage: 1 MILLIGRAM, QD
     Route: 042
     Dates: start: 20190910
  4. TEDUGLUTIDE [Suspect]
     Active Substance: TEDUGLUTIDE
     Indication: Short-bowel syndrome
     Dosage: 1 MILLIGRAM, QD
     Route: 042
     Dates: start: 20190910
  5. VANCOMYCIN [Concomitant]
     Active Substance: VANCOMYCIN
     Indication: Infection
     Dosage: UNK, QD
     Route: 042
     Dates: start: 20190902, end: 20190903
  6. VANCOMYCIN [Concomitant]
     Active Substance: VANCOMYCIN
     Indication: Pyrexia
     Dosage: UNK
     Route: 065
     Dates: start: 20220201, end: 20220212
  7. TAUROLIDINE [Concomitant]
     Active Substance: TAUROLIDINE
     Indication: Infection
     Dosage: 0.30 MILLILITER, QD
     Route: 048
     Dates: start: 20220201
  8. OMEPRAZOLE [Concomitant]
     Active Substance: OMEPRAZOLE
     Indication: Gastrointestinal disorder prophylaxis
     Dosage: 20 MILLIGRAM, QD
     Route: 048
     Dates: start: 20211028
  9. BACTRIM [Concomitant]
     Active Substance: SULFAMETHOXAZOLE\TRIMETHOPRIM
     Indication: Infection prophylaxis
     Dosage: UNK UNK, QD
     Route: 048
     Dates: start: 20191212, end: 20191217
  10. BACTRIM [Concomitant]
     Active Substance: SULFAMETHOXAZOLE\TRIMETHOPRIM
     Indication: Urinary tract infection
     Dosage: UNK UNK, QD
     Route: 048
     Dates: start: 20211028, end: 202201
  11. URSODIOL [Concomitant]
     Active Substance: URSODIOL
     Indication: Cholestasis
     Dosage: 1.5 MILLILITER, BID
     Route: 048
     Dates: start: 20150116, end: 20150729
  12. URSODIOL [Concomitant]
     Active Substance: URSODIOL
     Dosage: 2 MILLILITER, BID
     Route: 048
     Dates: start: 20150730, end: 20180529
  13. URSODIOL [Concomitant]
     Active Substance: URSODIOL
     Dosage: 3 MILLILITER, BID
     Route: 048
     Dates: start: 20180530, end: 20210703
  14. URSODIOL [Concomitant]
     Active Substance: URSODIOL
     Dosage: 4 MILLILITER, BID
     Route: 048
     Dates: start: 20210703
  15. QUESTRAN [Concomitant]
     Active Substance: CHOLESTYRAMINE
     Indication: Hypercholesterolaemia
     Dosage: 2 GRAM, TID
     Route: 048
     Dates: start: 20150716, end: 20160314
  16. QUESTRAN [Concomitant]
     Active Substance: CHOLESTYRAMINE
     Dosage: 4 GRAM, QD
     Route: 048
     Dates: start: 20160315, end: 20211028
  17. QUESTRAN [Concomitant]
     Active Substance: CHOLESTYRAMINE
     Dosage: 1.3 GRAM, BID
     Route: 048
     Dates: start: 20211028
  18. AMOXICILLIN [Concomitant]
     Active Substance: AMOXICILLIN
     Indication: Pharyngitis bacterial
     Dosage: 40 MILLIGRAM/KILOGRAM, BID
     Route: 042
     Dates: start: 20190222, end: 20190303
  19. CYPROHEPTADINE HYDROCHLORIDE [Concomitant]
     Active Substance: CYPROHEPTADINE HYDROCHLORIDE
     Indication: Hypersensitivity
     Dosage: 2.5 MILLIGRAM, BID
     Dates: start: 20190918
  20. CEFOTAXIME [Concomitant]
     Active Substance: CEFOTAXIME SODIUM
     Indication: Pyrexia
     Dosage: UNK UNK, QD
     Route: 042
     Dates: start: 20190902, end: 20190903
  21. AMIKACIN SULFATE [Concomitant]
     Active Substance: AMIKACIN SULFATE
     Indication: Pyelonephritis
     Dosage: 20 MILLIGRAM/KILOGRAM, QD
     Route: 042
     Dates: start: 20191224, end: 20191229

REACTIONS (2)
  - Staphylococcal infection [Recovered/Resolved]
  - Vascular device infection [Recovered/Resolved]

NARRATIVE: CASE EVENT DATE: 20220131
